FAERS Safety Report 9659016 (Version 7)
Quarter: 2014Q2

REPORT INFORMATION
  Report Type: Report from Study
  Country: US (occurrence: US)
  Receive Date: 20131031
  Receipt Date: 20140602
  Transmission Date: 20141212
  Serious: Yes (Hospitalization)
  Sender: FDA-Public Use
  Company Number: US-BIOGENIDEC-2013BI103274

PATIENT
  Age: 46 Year
  Sex: Female

DRUGS (4)
  1. AVONEX [Suspect]
     Indication: MULTIPLE SCLEROSIS
     Route: 030
     Dates: start: 2010
  2. AVONEX [Suspect]
     Indication: MULTIPLE SCLEROSIS
     Route: 030
     Dates: start: 20110501
  3. AVONEX [Suspect]
     Indication: MULTIPLE SCLEROSIS
     Route: 030
     Dates: start: 20110527, end: 201312
  4. AVONEX [Suspect]
     Indication: MULTIPLE SCLEROSIS
     Route: 030
     Dates: start: 201312

REACTIONS (24)
  - Body fat disorder [Recovered/Resolved]
  - Diabetes mellitus [Recovered/Resolved]
  - Hyperlipidaemia [Recovered/Resolved]
  - Breast cancer [Recovered/Resolved with Sequelae]
  - Surgery [Recovered/Resolved]
  - Secretion discharge [Recovered/Resolved]
  - Memory impairment [Not Recovered/Not Resolved]
  - Furuncle [Recovered/Resolved]
  - Abdominal discomfort [Recovered/Resolved]
  - Cognitive disorder [Not Recovered/Not Resolved]
  - Cyst [Not Recovered/Not Resolved]
  - Muscle twitching [Recovered/Resolved]
  - Haematoma [Recovered/Resolved]
  - Blood glucose increased [Unknown]
  - Mastitis [Recovered/Resolved]
  - Menopausal symptoms [Not Recovered/Not Resolved]
  - Stress [Not Recovered/Not Resolved]
  - Migraine [Not Recovered/Not Resolved]
  - Staphylococcal infection [Not Recovered/Not Resolved]
  - Multiple sclerosis relapse [Recovered/Resolved]
  - Fatigue [Not Recovered/Not Resolved]
  - Anxiety [Recovered/Resolved]
  - Musculoskeletal stiffness [Recovered/Resolved]
  - Insomnia [Recovered/Resolved]
